FAERS Safety Report 4297295-4 (Version None)
Quarter: 2004Q1

REPORT INFORMATION
  Report Type: 
  Country: None (occurrence: None)
  Receive Date: 20040218
  Receipt Date: 20040210
  Transmission Date: 20041129
  Serious: Yes (Death)
  Sender: FDA-Public Use
  Company Number: 200410335JP

PATIENT
  Age: 69 Year
  Sex: Female

DRUGS (1)
  1. RILUTEK [Suspect]
     Indication: AMYOTROPHIC LATERAL SCLEROSIS
     Route: 048

REACTIONS (3)
  - AMYOTROPHIC LATERAL SCLEROSIS [None]
  - DISEASE PROGRESSION [None]
  - REFUSAL OF TREATMENT BY PATIENT [None]
